FAERS Safety Report 14491599 (Version 1)
Quarter: 2018Q1

REPORT INFORMATION
  Report Type: Spontaneous
  Country: US (occurrence: US)
  Receive Date: 20180205
  Receipt Date: 20180205
  Transmission Date: 20180509
  Serious: Yes (Hospitalization)
  Sender: FDA-Public Use
  Company Number: None

PATIENT
  Age: 71 Year
  Sex: Male
  Weight: 107 kg

DRUGS (3)
  1. DIVALPROEX [Suspect]
     Active Substance: DIVALPROEX SODIUM
     Indication: MANIA
     Dates: start: 20171120, end: 20171229
  2. DIVALPROEX [Suspect]
     Active Substance: DIVALPROEX SODIUM
     Indication: BIPOLAR DISORDER
     Dates: start: 20171120, end: 20171229
  3. DIVALPROEX [Suspect]
     Active Substance: DIVALPROEX SODIUM
     Indication: AFFECTIVE DISORDER
     Dates: start: 20171120, end: 20171229

REACTIONS (2)
  - Gamma-glutamyltransferase increased [None]
  - Liver function test increased [None]

NARRATIVE: CASE EVENT DATE: 20171125
